FAERS Safety Report 19655931 (Version 1)
Quarter: 2021Q3

REPORT INFORMATION
  Report Type: Report from Study
  Country: CN (occurrence: CN)
  Receive Date: 20210804
  Receipt Date: 20210804
  Transmission Date: 20211014
  Serious: Yes (Death, Other)
  Sender: FDA-Public Use
  Company Number: CN-PFIZER INC-202100978519

PATIENT

DRUGS (2)
  1. IDARUBICIN HCL [Suspect]
     Active Substance: IDARUBICIN HYDROCHLORIDE
     Indication: ACUTE MYELOID LEUKAEMIA
     Dosage: UNK, CYCLIC UNK (10 TO 12 MG/M2 FOR THREE CONSECUTIVE DAYS (DAY 1?3)
     Route: 042
  2. CYTARABINE. [Suspect]
     Active Substance: CYTARABINE
     Indication: ACUTE MYELOID LEUKAEMIA
     Dosage: 100 MG/M2, CYCLIC (FOR SEVEN CONSECUTIVE DAYS (DAY 1?7)
     Route: 042

REACTIONS (3)
  - Pneumonia [Fatal]
  - Respiratory failure [Fatal]
  - Myelosuppression [Unknown]
